FAERS Safety Report 10600575 (Version 2)
Quarter: 2014Q4

REPORT INFORMATION
  Report Type: Spontaneous
  Country: US (occurrence: US)
  Receive Date: 20141124
  Receipt Date: 20141210
  Transmission Date: 20150529
  Serious: Yes (Hospitalization, Other)
  Sender: FDA-Public Use
  Company Number: US-BRISTOL-MYERS SQUIBB COMPANY-21599709

PATIENT
  Sex: Female
  Weight: 74 kg

DRUGS (2)
  1. INSULIN [Suspect]
     Active Substance: INSULIN NOS
     Indication: PRODUCT USED FOR UNKNOWN INDICATION
     Route: 065
  2. BYETTA [Suspect]
     Active Substance: EXENATIDE
     Indication: TYPE 2 DIABETES MELLITUS
     Dosage: 10 ?G, UNK
     Route: 058
     Dates: end: 2014

REACTIONS (2)
  - Blood glucose decreased [Unknown]
  - Arteriosclerosis [Recovered/Resolved]

NARRATIVE: CASE EVENT DATE: 2014
